FAERS Safety Report 6694991-6 (Version None)
Quarter: 2010Q2

REPORT INFORMATION
  Report Type: 
  Country: None (occurrence: None)
  Receive Date: 20100423
  Receipt Date: 20100412
  Transmission Date: 20101027
  Serious: Yes (Hospitalization)
  Sender: FDA-Public Use
  Company Number: PHHY2010JP22913

PATIENT
  Age: 3 Year
  Sex: Female

DRUGS (1)
  1. TEGRETOL [Suspect]
     Dosage: 1.2 G DAILY
     Route: 048

REACTIONS (2)
  - ACCIDENTAL OVERDOSE [None]
  - DRUG DISPENSING ERROR [None]
